FAERS Safety Report 8821853 (Version 1)
Quarter: 2012Q4

REPORT INFORMATION
  Report Type: 
  Country: IR (occurrence: IR)
  Receive Date: 20121002
  Receipt Date: 20121002
  Transmission Date: 20130627
  Serious: Yes (Hospitalization)
  Sender: FDA-Public Use
  Company Number: IR-MYLANLABS-2012S1019642

PATIENT
  Age: 48 Year
  Sex: Male

DRUGS (1)
  1. BACLOFEN [Suspect]
     Indication: BACK PAIN
     Dosage: cumulative dose of 30 mg
     Route: 065

REACTIONS (2)
  - Accidental overdose [Recovered/Resolved]
  - Encephalopathy [Recovered/Resolved]
